FAERS Safety Report 22156648 (Version 1)
Quarter: 2023Q1

REPORT INFORMATION
  Report Type: Spontaneous
  Country: CN (occurrence: CN)
  Receive Date: 20230330
  Receipt Date: 20230330
  Transmission Date: 20230418
  Serious: Yes (Other)
  Sender: FDA-Public Use
  Company Number: CN-ELI_LILLY_AND_COMPANY-CN202303010568

PATIENT
  Age: 77 Year
  Sex: Female
  Weight: 47 kg

DRUGS (1)
  1. HUMALOG [Suspect]
     Active Substance: INSULIN LISPRO
     Indication: Diabetes mellitus
     Dosage: 8 U, DAILY
     Route: 058
     Dates: start: 20230310, end: 20230310

REACTIONS (3)
  - Dermatitis allergic [Recovered/Resolved]
  - Chest discomfort [Recovered/Resolved]
  - Blood pressure abnormal [Recovered/Resolved]

NARRATIVE: CASE EVENT DATE: 20230310
